FAERS Safety Report 25224455 (Version 1)
Quarter: 2025Q2

REPORT INFORMATION
  Report Type: Spontaneous
  Country: US (occurrence: None)
  Receive Date: 20250421
  Receipt Date: 20250421
  Transmission Date: 20250716
  Serious: No
  Sender: FDA-CTU
  Company Number: None

PATIENT
  Age: 67 Year
  Sex: Female
  Weight: 82.8 kg

DRUGS (28)
  1. PROLIA [Suspect]
     Active Substance: DENOSUMAB
     Indication: Osteoporosis
  2. LISINOPRIL [Concomitant]
     Active Substance: LISINOPRIL
  3. SYNTHROID [Concomitant]
     Active Substance: LEVOTHYROXINE SODIUM
  4. GABAPENTIN [Concomitant]
     Active Substance: GABAPENTIN
  5. TRAMADOL [Concomitant]
     Active Substance: TRAMADOL
  6. CLONAZEPAM [Concomitant]
     Active Substance: CLONAZEPAM
  7. TEMAZEPAM [Concomitant]
     Active Substance: TEMAZEPAM
  8. ristasis [Concomitant]
  9. HUMIRA [Concomitant]
     Active Substance: ADALIMUMAB
  10. ALLEGRA [Concomitant]
     Active Substance: FEXOFENADINE HYDROCHLORIDE
  11. ADVIL [Concomitant]
     Active Substance: IBUPROFEN
  12. TYLENOL [Concomitant]
     Active Substance: ACETAMINOPHEN
  13. ASPIRIN [Concomitant]
     Active Substance: ASPIRIN
  14. FOLIC ACID [Concomitant]
     Active Substance: FOLIC ACID
  15. OMEGA 3 [Concomitant]
     Active Substance: CAPSAICIN
  16. DIMETHYL SULFONE [Concomitant]
     Active Substance: DIMETHYL SULFONE
  17. UNSPECIFIED INGREDIENT [Concomitant]
     Active Substance: UNSPECIFIED INGREDIENT
  18. MAGNESIUM CITRATE [Suspect]
     Active Substance: MAGNESIUM CITRATE
  19. VITAMINS [Concomitant]
     Active Substance: VITAMINS
  20. apple cider vigegar [Concomitant]
  21. olive leaf [Concomitant]
  22. COENZYME Q10 [Concomitant]
     Active Substance: DIETARY SUPPLEMENT\UBIDECARENONE
  23. DIETARY SUPPLEMENT\RESVERATROL [Concomitant]
     Active Substance: DIETARY SUPPLEMENT\RESVERATROL
  24. SELENIUM [Concomitant]
     Active Substance: SELENIUM
  25. .ALPHA.-LIPOIC ACID [Concomitant]
     Active Substance: .ALPHA.-LIPOIC ACID
  26. VITAMIN D3 [Concomitant]
     Active Substance: CHOLECALCIFEROL
  27. milk thisstle [Concomitant]
  28. C [Concomitant]

REACTIONS (7)
  - Unevaluable event [None]
  - Euphoric mood [None]
  - Dissociation [None]
  - Feeling abnormal [None]
  - Fear [None]
  - Rash [None]
  - Encephalitis [None]

NARRATIVE: CASE EVENT DATE: 20250313
